FAERS Safety Report 13637609 (Version 3)
Quarter: 2017Q2

REPORT INFORMATION
  Report Type: Spontaneous
  Country: GR (occurrence: GR)
  Receive Date: 20170609
  Receipt Date: 20170623
  Transmission Date: 20170830
  Serious: Yes (Other)
  Sender: FDA-Public Use
  Company Number: GR-PFIZER INC-2017249111

PATIENT
  Age: 61 Year
  Sex: Female

DRUGS (2)
  1. XALATAN [Suspect]
     Active Substance: LATANOPROST
     Dosage: UNK (RIGHT EYE)
     Route: 047
  2. TRAVATAN [Suspect]
     Active Substance: TRAVOPROST
     Dosage: UNK, (BOTH EYES)
     Route: 047

REACTIONS (4)
  - Retinal degeneration [Recovered/Resolved]
  - Eye disorder [Recovered/Resolved]
  - Blepharal pigmentation [Recovered/Resolved]
  - Visual impairment [Recovered/Resolved]
